FAERS Safety Report 4887697-7 (Version None)
Quarter: 2006Q1

REPORT INFORMATION
  Report Type: 
  Country: None (occurrence: None)
  Receive Date: 20060119
  Receipt Date: 20060119
  Transmission Date: 20060701
  Serious: Yes (Hospitalization)
  Sender: FDA-Public Use
  Company Number: None

PATIENT
  Age: 56 Year
  Sex: Male
  Weight: 97.5234 kg

DRUGS (2)
  1. ATENOLOL [Suspect]
     Dosage: 100 MG PO Q AM
     Route: 048
  2. TERAZOSIN 5 MG PO [Suspect]
     Dosage: 5 MG PO QHS
     Route: 048

REACTIONS (2)
  - HYPOPERFUSION [None]
  - SYNCOPE [None]
